FAERS Safety Report 8417999-9 (Version None)
Quarter: 2012Q2

REPORT INFORMATION
  Report Type: 
  Country: None (occurrence: None)
  Receive Date: 20120531
  Receipt Date: 20120531
  Transmission Date: 20120825
  Serious: Yes (Other)
  Sender: FDA-Public Use
  Company Number: None

PATIENT
  Age: 65 Year
  Sex: Female
  Weight: 71.2147 kg

DRUGS (8)
  1. MINOCYN [Concomitant]
  2. VICODIN [Concomitant]
  3. VIOXX [Concomitant]
  4. BEXTRA [Concomitant]
  5. PANTOPRAZOLE [Suspect]
     Dosage: ONE DAILY PO
     Route: 048
     Dates: start: 20120501, end: 20120505
  6. OXYCODONE HCL [Concomitant]
  7. VITAMIN B COMPLEX CAP [Concomitant]
  8. SUCRALFATE [Suspect]
     Indication: ABDOMINAL PAIN UPPER
     Dosage: ONE 4DAY PO
     Route: 048
     Dates: start: 20111015, end: 20111016

REACTIONS (1)
  - SWELLING FACE [None]
